FAERS Safety Report 18410346 (Version 24)
Quarter: 2025Q2

REPORT INFORMATION
  Report Type: Report from Study
  Country: CA (occurrence: CA)
  Receive Date: 20201021
  Receipt Date: 20250523
  Transmission Date: 20250716
  Serious: Yes (Other)
  Sender: NOVARTIS
  Company Number: PHHY2019CA080617

PATIENT
  Age: 80 Year
  Sex: Male

DRUGS (9)
  1. SANDOSTATIN LAR DEPOT [Suspect]
     Active Substance: OCTREOTIDE ACETATE
     Indication: Rectal cancer metastatic
     Dosage: UNK, Q4W
     Route: 030
     Dates: start: 20190304
  2. SANDOSTATIN LAR DEPOT [Suspect]
     Active Substance: OCTREOTIDE ACETATE
     Indication: Gastroenteropancreatic neuroendocrine tumour disease
     Dosage: 30 MG, QMO (EVERY 4 WEEKS)
     Route: 030
     Dates: start: 20190306
  3. SANDOSTATIN LAR DEPOT [Suspect]
     Active Substance: OCTREOTIDE ACETATE
     Route: 030
  4. SANDOSTATIN LAR DEPOT [Suspect]
     Active Substance: OCTREOTIDE ACETATE
     Route: 030
  5. SANDOSTATIN LAR DEPOT [Suspect]
     Active Substance: OCTREOTIDE ACETATE
     Route: 030
     Dates: start: 20240710
  6. SANDOSTATIN LAR DEPOT [Suspect]
     Active Substance: OCTREOTIDE ACETATE
     Route: 030
     Dates: start: 20240904
  7. SANDOSTATIN LAR DEPOT [Suspect]
     Active Substance: OCTREOTIDE ACETATE
     Route: 030
     Dates: start: 20250205
  8. BISOPROLOL [Concomitant]
     Active Substance: BISOPROLOL
     Indication: Cardiac disorder
     Dosage: 5 MG, QD
     Route: 048
  9. ENTYVIO [Concomitant]
     Active Substance: VEDOLIZUMAB
     Indication: Product used for unknown indication
     Route: 042

REACTIONS (38)
  - Crohn^s disease [Unknown]
  - Faeces soft [Unknown]
  - Dyschezia [Not Recovered/Not Resolved]
  - Diarrhoea [Not Recovered/Not Resolved]
  - Constipation [Not Recovered/Not Resolved]
  - Abdominal distension [Not Recovered/Not Resolved]
  - Pulmonary thrombosis [Unknown]
  - Bronchial haemorrhage [Unknown]
  - Cachexia [Unknown]
  - Metastases to lung [Unknown]
  - Haemoptysis [Unknown]
  - Blood pressure fluctuation [Not Recovered/Not Resolved]
  - Cataract [Unknown]
  - Colon cancer [Unknown]
  - Anaemia [Unknown]
  - Platelet count decreased [Unknown]
  - Heart rate irregular [Unknown]
  - Osteoarthritis [Unknown]
  - Malaise [Recovered/Resolved]
  - Malaise [Unknown]
  - Decreased appetite [Recovered/Resolved]
  - Somnolence [Recovered/Resolved]
  - Pain [Recovered/Resolved]
  - Asthenia [Unknown]
  - Heart rate increased [Unknown]
  - Device leakage [Unknown]
  - Syringe issue [Unknown]
  - Needle issue [Unknown]
  - Injection site mass [Unknown]
  - Product use complaint [Unknown]
  - Off label use [Unknown]
  - Limb discomfort [Recovered/Resolved]
  - Muscular weakness [Recovered/Resolved]
  - Incorrect dose administered [Unknown]
  - Muscle atrophy [Unknown]
  - Device difficult to use [Unknown]
  - Pulmonary mass [Unknown]
  - Device issue [Unknown]

NARRATIVE: CASE EVENT DATE: 20190404
